FAERS Safety Report 9277607 (Version 1)
Quarter: 2013Q2

REPORT INFORMATION
  Report Type: Spontaneous
  Country: US (occurrence: US)
  Receive Date: 20130508
  Receipt Date: 20130508
  Transmission Date: 20140414
  Serious: No
  Sender: FDA-Public Use
  Company Number: US-BIOGENIDEC-2013BI039533

PATIENT
  Sex: Female

DRUGS (1)
  1. TYSABRI [Suspect]
     Indication: MULTIPLE SCLEROSIS
     Route: 042
     Dates: start: 20120112

REACTIONS (5)
  - Hyperhidrosis [Unknown]
  - Speech disorder [Unknown]
  - Arthritis [Unknown]
  - Fibromyalgia [Unknown]
  - Anxiety [Unknown]
